FAERS Safety Report 16868016 (Version 6)
Quarter: 2025Q3

REPORT INFORMATION
  Report Type: Spontaneous
  Country: CA (occurrence: CA)
  Receive Date: 20190930
  Receipt Date: 20250725
  Transmission Date: 20251021
  Serious: Yes (Hospitalization, Other)
  Sender: PFIZER
  Company Number: CA-PFIZER INC-2801075

PATIENT
  Age: 32 Year
  Sex: Female

DRUGS (12)
  1. FENTANYL CITRATE [Suspect]
     Active Substance: FENTANYL CITRATE
     Indication: Caesarean section
     Route: 037
  2. FENTANYL CITRATE [Suspect]
     Active Substance: FENTANYL CITRATE
     Indication: Spinal anaesthesia
  3. MORPHINE SULFATE [Suspect]
     Active Substance: MORPHINE SULFATE
     Indication: Caesarean section
     Route: 037
  4. MORPHINE SULFATE [Suspect]
     Active Substance: MORPHINE SULFATE
     Indication: Spinal anaesthesia
  5. PHENYLEPHRINE HYDROCHLORIDE [Suspect]
     Active Substance: PHENYLEPHRINE HYDROCHLORIDE
     Indication: Caesarean section
     Route: 041
  6. PHENYLEPHRINE HYDROCHLORIDE [Suspect]
     Active Substance: PHENYLEPHRINE HYDROCHLORIDE
     Route: 041
  7. ATROPINE [Concomitant]
     Active Substance: ATROPINE
     Indication: Bradycardia
     Route: 040
  8. ATROPINE [Concomitant]
     Active Substance: ATROPINE
     Indication: Hypotension
  9. BUPIVACAINE [Concomitant]
     Active Substance: BUPIVACAINE
     Indication: Caesarean section
     Route: 037
  10. EPHEDRINE [Concomitant]
     Active Substance: EPHEDRINE
     Indication: Bradycardia
     Route: 040
  11. EPHEDRINE [Concomitant]
     Active Substance: EPHEDRINE
     Indication: Hypotension
  12. EPHEDRINE [Concomitant]
     Active Substance: EPHEDRINE
     Indication: Spinal anaesthesia

REACTIONS (4)
  - Anterior spinal artery syndrome [Recovered/Resolved with Sequelae]
  - Spinal cord injury [Recovered/Resolved with Sequelae]
  - Neuralgia [Not Recovered/Not Resolved]
  - Maternal exposure during pregnancy [Not Recovered/Not Resolved]
